FAERS Safety Report 9273905 (Version 1)
Quarter: 2013Q2

REPORT INFORMATION
  Report Type: Spontaneous
  Country: US (occurrence: US)
  Receive Date: 20130506
  Receipt Date: 20130506
  Transmission Date: 20140414
  Serious: No
  Sender: FDA-Public Use
  Company Number: US-AMGEN-USASP2013028862

PATIENT
  Age: 68 Year
  Sex: Male

DRUGS (1)
  1. ENBREL [Suspect]
     Indication: RHEUMATOID ARTHRITIS
     Dosage: 50 MG, QWK
     Dates: start: 20130211, end: 20130422

REACTIONS (4)
  - Dyspnoea [Not Recovered/Not Resolved]
  - Rosacea [Not Recovered/Not Resolved]
  - Cataract [Recovered/Resolved]
  - Vision blurred [Not Recovered/Not Resolved]
